FAERS Safety Report 5176689-9 (Version None)
Quarter: 2006Q4

REPORT INFORMATION
  Report Type: 
  Country: None (occurrence: None)
  Receive Date: 20060927
  Receipt Date: 20060927
  Transmission Date: 20070319
  Serious: No
  Sender: FDA-Public Use
  Company Number: None

PATIENT
  Age: 60 Year
  Sex: Female

DRUGS (2)
  1. PREMPRO [Suspect]
     Dosage: TABLETS ( EZ DIAL DISPENSER)
  2. PREMPHASE 14/14 [Suspect]
     Dosage: TABLETS (EZ DIAL DISPENSER)

REACTIONS (2)
  - DRUG DISPENSING ERROR [None]
  - MEDICATION ERROR [None]
